FAERS Safety Report 8508633-8 (Version None)
Quarter: 2012Q3

REPORT INFORMATION
  Report Type: 
  Country: None (occurrence: None)
  Receive Date: 20120713
  Receipt Date: 20120710
  Transmission Date: 20120928
  Serious: Yes (Death, Hospitalization, Other)
  Sender: FDA-Public Use
  Company Number: DE-009507513-2012SP032654

PATIENT

DRUGS (7)
  1. MARCUMAR [Concomitant]
     Indication: PRODUCT USED FOR UNKNOWN INDICATION
     Dosage: FOR WEEKS; DOSAGE ACCORDING TO QUICK'S VALUE
  2. RAMIPRIL [Concomitant]
     Indication: PRODUCT USED FOR UNKNOWN INDICATION
     Dosage: FOR YEARS
     Route: 048
     Dates: end: 20110831
  3. SEROQUEL [Concomitant]
     Indication: PRODUCT USED FOR UNKNOWN INDICATION
     Dosage: FOR WEEKS
     Route: 048
     Dates: end: 20110905
  4. RAMIPRIL [Concomitant]
     Dosage: 5 MG, QD
     Route: 048
     Dates: start: 20110901, end: 20110906
  5. SEROQUEL [Concomitant]
     Dosage: 800 MG, QD
     Route: 048
     Dates: start: 20110906
  6. SEROQUEL [Concomitant]
     Dosage: 600 MG, QD
     Dates: start: 20110906, end: 20110915
  7. ASENAPINE MALEATE [Suspect]
     Indication: PRODUCT USED FOR UNKNOWN INDICATION
     Dosage: 5 MG, QD
     Route: 048
     Dates: start: 20110901, end: 20110906

REACTIONS (4)
  - UNDERDOSE [None]
  - HYPERAESTHESIA [None]
  - INCORRECT ROUTE OF DRUG ADMINISTRATION [None]
  - ORAL DYSAESTHESIA [None]
